FAERS Safety Report 7150360-6 (Version None)
Quarter: 2010Q4

REPORT INFORMATION
  Report Type: 
  Country: None (occurrence: None)
  Receive Date: 20101207
  Receipt Date: 20101207
  Transmission Date: 20110411
  Serious: No
  Sender: FDA-Public Use
  Company Number: None

PATIENT
  Age: 19 Year
  Sex: Female
  Weight: 75.2971 kg

DRUGS (1)
  1. METHOTREXATE 25MG/CC [Suspect]
     Indication: ARTHRITIS

REACTIONS (5)
  - DYSPNOEA [None]
  - FATIGUE [None]
  - INJECTION SITE PAIN [None]
  - PRODUCT CONTAMINATION [None]
  - PRODUCT QUALITY ISSUE [None]
